FAERS Safety Report 5895580-3 (Version None)
Quarter: 2008Q3

REPORT INFORMATION
  Report Type: 
  Country: None (occurrence: None)
  Receive Date: 20080924
  Receipt Date: 20080115
  Transmission Date: 20090109
  Serious: Yes (Other)
  Sender: FDA-Public Use
  Company Number: US-ASTRAZENECA-2006UW08152

PATIENT
  Age: 620 Month
  Weight: 79.8 kg

DRUGS (17)
  1. SEROQUEL [Suspect]
     Indication: DEPRESSION
     Route: 048
     Dates: start: 20030401
  2. SEROQUEL [Suspect]
     Dosage: THREE 25 MG TABLETS
     Route: 048
     Dates: start: 20050101, end: 20060101
  3. RISPERDAL [Concomitant]
     Dates: start: 20020101, end: 20050101
  4. ZYPREXA [Concomitant]
     Dates: start: 20020101, end: 20030101
  5. ZOLOFT [Concomitant]
     Indication: DEPRESSION
     Route: 048
     Dates: start: 20020101
  6. KLONOPIN [Concomitant]
     Route: 048
  7. EPIVIR [Concomitant]
  8. NORVIR [Concomitant]
  9. VIDEX [Concomitant]
  10. REYATAZ [Concomitant]
  11. VIOXX [Concomitant]
     Route: 048
  12. ASPIRIN [Concomitant]
     Route: 048
  13. WELLBUTRIN [Concomitant]
  14. DOCUSATE [Concomitant]
     Indication: CONSTIPATION
  15. GABAPENTIN [Concomitant]
  16. NORTRIPTYLINE HCL [Concomitant]
     Route: 048
  17. NAPROXEN [Concomitant]

REACTIONS (2)
  - CEREBROVASCULAR ACCIDENT [None]
  - DIABETES MELLITUS [None]
